FAERS Safety Report 5626254-1 (Version None)
Quarter: 2008Q1

REPORT INFORMATION
  Report Type: 
  Country: None (occurrence: None)
  Receive Date: 20080214
  Receipt Date: 20080204
  Transmission Date: 20080703
  Serious: Yes (Hospitalization)
  Sender: FDA-Public Use
  Company Number: FR-ELI_LILLY_AND_COMPANY-FR200712001716

PATIENT
  Sex: Female

DRUGS (6)
  1. FORTEO [Suspect]
     Indication: OSTEOPOROSIS
     Dosage: 20 UG, DAILY (1/D)
     Route: 058
     Dates: start: 20060511, end: 20071105
  2. PRAXILENE [Concomitant]
     Dosage: 3 D/F, DAILY (1/D)
  3. LEXOMIL [Concomitant]
     Dosage: 0.25 D/F, 3/D
  4. DEROXAT [Concomitant]
     Dosage: 1.25 D/F, DAILY (1/D)
     Route: 048
  5. IDEOS [Concomitant]
     Dosage: 1 D/F, DAILY (1/D)
     Route: 048
  6. ELISOR [Concomitant]
     Dosage: 1 D/F, DAILY (1/D)
     Route: 048

REACTIONS (2)
  - BRONCHITIS [None]
  - THROMBOPHLEBITIS SUPERFICIAL [None]
